FAERS Safety Report 9496929 (Version 4)
Quarter: 2014Q1

REPORT INFORMATION
  Report Type: Spontaneous
  Country: US (occurrence: US)
  Receive Date: 20130904
  Receipt Date: 20140204
  Transmission Date: 20141002
  Serious: Yes (Other)
  Sender: FDA-Public Use
  Company Number: US-AMGEN-USASP2013061600

PATIENT
  Age: 30 Year
  Sex: Male
  Weight: 86.17 kg

DRUGS (7)
  1. ENBREL [Suspect]
     Indication: PSORIASIS
     Dosage: 50 MG, 2 TIMES/WK
     Route: 058
     Dates: start: 20130708
  2. VICODIN [Suspect]
     Indication: PAIN
     Dosage: UNK
     Route: 065
  3. TRAMADOL [Concomitant]
     Dosage: UNK
  4. VENTOLIN                           /00139501/ [Concomitant]
     Dosage: UNK
  5. PRILOSEC                           /00661201/ [Concomitant]
     Dosage: UNK
  6. MOBIC [Concomitant]
     Dosage: UNK
  7. FLEXERIL                           /00428402/ [Concomitant]
     Dosage: UNK

REACTIONS (3)
  - Hepatic enzyme increased [Not Recovered/Not Resolved]
  - Anaphylactic reaction [Unknown]
  - Pain [Unknown]
